FAERS Safety Report 9812332 (Version 1)
Quarter: 2014Q1

REPORT INFORMATION
  Report Type: Report from Study
  Country: CL (occurrence: CL)
  Receive Date: 20140113
  Receipt Date: 20140113
  Transmission Date: 20141002
  Serious: Yes (Other)
  Sender: FDA-Public Use
  Company Number: CL-ROCHE-1331571

PATIENT
  Age: 38 Year
  Sex: Female
  Weight: 66 kg

DRUGS (1)
  1. XELODA [Suspect]
     Indication: BREAST CANCER
     Dosage: 14-DAY-CYCLE, MOST RECENT DOSE ON 30/DEC/2013
     Route: 048
     Dates: start: 20130918, end: 20140106

REACTIONS (2)
  - Breast mass [Not Recovered/Not Resolved]
  - Drug ineffective [Unknown]
